FAERS Safety Report 21943663 (Version 1)
Quarter: 2023Q1

REPORT INFORMATION
  Report Type: Report from Study
  Country: TW (occurrence: TW)
  Receive Date: 20230202
  Receipt Date: 20230202
  Transmission Date: 20230418
  Serious: Yes (Death, Other)
  Sender: FDA-Public Use
  Company Number: TW-BAYER-2023A011480

PATIENT
  Age: 62 Year
  Sex: Male

DRUGS (1)
  1. VENTAVIS [Suspect]
     Active Substance: ILOPROST
     Indication: Pulmonary arterial hypertension
     Dosage: 20MCG/2ML NEBULIZER SOLUTION 1 AMP QID
     Route: 055
     Dates: start: 20200511

REACTIONS (6)
  - Death [Fatal]
  - Shock [Unknown]
  - Wheezing [Not Recovered/Not Resolved]
  - Coma [Unknown]
  - Product prescribing issue [Unknown]
  - Inappropriate schedule of product administration [Unknown]

NARRATIVE: CASE EVENT DATE: 20200511
